FAERS Safety Report 21630834 (Version 2)
Quarter: 2022Q4

REPORT INFORMATION
  Report Type: Spontaneous
  Country: PL (occurrence: PL)
  Receive Date: 20221123
  Receipt Date: 20221207
  Transmission Date: 20230113
  Serious: Yes (Hospitalization, Other)
  Sender: FDA-Public Use
  Company Number: PL-BoehringerIngelheim-2022-BI-203982

PATIENT
  Age: 72 Year
  Sex: Female

DRUGS (2)
  1. PRADAXA [Suspect]
     Active Substance: DABIGATRAN ETEXILATE MESYLATE
     Indication: Atrial fibrillation
  2. EPLERENONE [Concomitant]
     Active Substance: EPLERENONE
     Indication: Cardiac failure

REACTIONS (4)
  - Chronic kidney disease [Not Recovered/Not Resolved]
  - Anuria [Recovered/Resolved]
  - Ureteric obstruction [Not Recovered/Not Resolved]
  - Ureteral neoplasm [Not Recovered/Not Resolved]

NARRATIVE: CASE EVENT DATE: 20221109
